FAERS Safety Report 7840909-X (Version None)
Quarter: 2011Q4

REPORT INFORMATION
  Report Type: 
  Country: None (occurrence: None)
  Receive Date: 20111021
  Receipt Date: 20111021
  Transmission Date: 20120403
  Serious: Yes (Other)
  Sender: FDA-Public Use
  Company Number: None

PATIENT
  Age: 66 Year
  Sex: Female
  Weight: 136.0791 kg

DRUGS (2)
  1. PRADAXA [Suspect]
     Dosage: 75 MG 1 A DAY
     Dates: start: 20110701, end: 20110719
  2. PRADAXA [Suspect]
     Dosage: 75 MG 1 A DAY
     Dates: start: 20110511, end: 20110516

REACTIONS (3)
  - DIARRHOEA [None]
  - DYSGEUSIA [None]
  - ABDOMINAL PAIN UPPER [None]
